FAERS Safety Report 6978383-8 (Version None)
Quarter: 2010Q3

REPORT INFORMATION
  Report Type: 
  Country: None (occurrence: None)
  Receive Date: 20100913
  Receipt Date: 20100907
  Transmission Date: 20110219
  Serious: Yes (Hospitalization)
  Sender: FDA-Public Use
  Company Number: PHHO2010US12577

PATIENT
  Age: 58 Year
  Sex: Female
  Weight: 62.5 kg

DRUGS (8)
  1. AFINITOR [Suspect]
     Indication: BREAST CANCER METASTATIC
     Dosage: 10 MG, DAILY
     Route: 048
     Dates: start: 20100729, end: 20100809
  2. AFINITOR [Suspect]
     Dosage: 7.5 MG DAILY
     Dates: start: 20100831
  3. XELODA [Suspect]
     Indication: BREAST CANCER METASTATIC
     Dosage: 825 MG/M2 (3000 MG DAILY)
     Route: 048
     Dates: start: 20100729, end: 20100809
  4. XELODA [Suspect]
     Dosage: 2500 MG DAILY
     Dates: start: 20100831
  5. ZOMETA [Concomitant]
  6. ADVAIR DISKUS 100/50 [Concomitant]
  7. DO-DO [Concomitant]
  8. LEVOTHYROXINE [Concomitant]

REACTIONS (10)
  - APHAGIA [None]
  - DYSPHAGIA [None]
  - FAILURE TO THRIVE [None]
  - FATIGUE [None]
  - FEBRILE NEUTROPENIA [None]
  - FLUID INTAKE REDUCED [None]
  - INFECTION [None]
  - ORAL PAIN [None]
  - STOMATITIS [None]
  - THROMBOCYTOPENIA [None]
